FAERS Safety Report 4977852-X (Version None)
Quarter: 2006Q2

REPORT INFORMATION
  Report Type: 
  Country: None (occurrence: None)
  Receive Date: 20060420
  Receipt Date: 20060418
  Transmission Date: 20061013
  Serious: Yes (Hospitalization)
  Sender: FDA-Public Use
  Company Number: CA-GLAXOSMITHKLINE-A0602507A

PATIENT
  Age: 62 Year
  Sex: Male

DRUGS (6)
  1. DEXEDRINE [Suspect]
     Indication: NARCOLEPSY
     Route: 048
     Dates: start: 19780101
  2. LOSEC [Concomitant]
     Dosage: 10MG TWICE PER DAY
  3. FLURAZEPAM [Concomitant]
     Dosage: 30MG AT NIGHT
  4. DIDROCAL [Concomitant]
     Indication: OSTEOPOROSIS
  5. CALCIUM GLUCONATE [Concomitant]
  6. VITAMIN D [Concomitant]
     Route: 048

REACTIONS (4)
  - DISSOCIATION [None]
  - FALL [None]
  - HEART RATE INCREASED [None]
  - HYPERHIDROSIS [None]
